FAERS Safety Report 5019500-9 (Version None)
Quarter: 2006Q2

REPORT INFORMATION
  Report Type: 
  Country: None (occurrence: None)
  Receive Date: 20060605
  Receipt Date: 20060605
  Transmission Date: 20061013
  Serious: Yes (Hospitalization)
  Sender: FDA-Public Use
  Company Number: None

PATIENT
  Age: 28 Month
  Sex: Male
  Weight: 14.6 kg

DRUGS (7)
  1. VALPROIC ACID SYRUP [Suspect]
     Indication: EPILEPSY
     Dosage: 2ML -100MG- TWICE A DAY PO
     Route: 048
     Dates: start: 20060331, end: 20060408
  2. LAMICTAL [Suspect]
     Indication: EPILEPSY
     Dosage: 50MG TWICE A DAY PO
     Route: 048
     Dates: start: 20051223, end: 20060502
  3. KEPPRA [Concomitant]
  4. HYDROCORTISONE [Concomitant]
  5. LEVOXYL [Concomitant]
  6. NUTROPIN [Concomitant]
  7. CARNITOR [Concomitant]

REACTIONS (7)
  - DEHYDRATION [None]
  - DRUG PRESCRIBING ERROR [None]
  - DRUG TOXICITY [None]
  - LETHARGY [None]
  - NEUROLOGICAL SYMPTOM [None]
  - TIC [None]
  - VOMITING [None]
